FAERS Safety Report 7250602-2 (Version None)
Quarter: 2011Q1

REPORT INFORMATION
  Report Type: 
  Country: None (occurrence: None)
  Receive Date: 20110128
  Receipt Date: 20110119
  Transmission Date: 20110831
  Serious: Yes (Other)
  Sender: FDA-Public Use
  Company Number: SE-JNJFOC-20110104814

PATIENT
  Age: 63 Year
  Sex: Female

DRUGS (5)
  1. LITHIUM CITRATE [Suspect]
     Indication: PRODUCT USED FOR UNKNOWN INDICATION
     Route: 065
  2. HALDOL [Suspect]
     Indication: BIPOLAR DISORDER
     Route: 065
  3. HALDOL [Suspect]
     Indication: BIPOLAR DISORDER
     Dosage: 100 MG/ML, 1.5 ML ONCE EVERY 14 DAYS
     Route: 065
  4. LITHIUM [Interacting]
     Indication: PRODUCT USED FOR UNKNOWN INDICATION
     Route: 065
  5. UNKNOWN MEDICATION [Concomitant]
     Route: 065

REACTIONS (4)
  - DRUG INTERACTION [None]
  - TACHYCARDIA [None]
  - CONTRAINDICATION TO MEDICAL TREATMENT [None]
  - NEUROTOXICITY [None]
